FAERS Safety Report 4937588-8 (Version None)
Quarter: 2006Q1

REPORT INFORMATION
  Report Type: 
  Country: None (occurrence: None)
  Receive Date: 20060309
  Receipt Date: 20050930
  Transmission Date: 20060701
  Serious: No
  Sender: FDA-Public Use
  Company Number: US-MERCK-0510USA01313

PATIENT
  Sex: Female
  Weight: 84 kg

DRUGS (1)
  1. VIOXX [Suspect]
     Indication: PAIN IN EXTREMITY
     Route: 048
     Dates: start: 20030601, end: 20040930

REACTIONS (1)
  - CHEST PAIN [None]
